FAERS Safety Report 14524900 (Version 1)
Quarter: 2018Q1

REPORT INFORMATION
  Report Type: Spontaneous
  Country: US (occurrence: US)
  Receive Date: 20180210
  Receipt Date: 20180210
  Transmission Date: 20180509
  Serious: No
  Sender: FDA-Public Use
  Company Number: None

PATIENT
  Age: 60 Year
  Sex: Female

DRUGS (1)
  1. EPCLUSA [Suspect]
     Active Substance: SOFOSBUVIR\VELPATASVIR
     Indication: HEPATITIS B
     Dosage: 400MG-100MG TAB DAILY PO
     Route: 048
     Dates: start: 20180122

REACTIONS (1)
  - Anxiety [None]

NARRATIVE: CASE EVENT DATE: 20180210
